FAERS Safety Report 17911817 (Version 1)
Quarter: 2020Q2

REPORT INFORMATION
  Report Type: Spontaneous
  Country: US (occurrence: US)
  Receive Date: 20200618
  Receipt Date: 20200618
  Transmission Date: 20200714
  Serious: Yes (Other)
  Sender: FDA-Public Use
  Company Number: None

PATIENT
  Age: 27 Year
  Sex: Female
  Weight: 85.5 kg

DRUGS (3)
  1. BUSPIRONE [Concomitant]
     Active Substance: BUSPIRONE HYDROCHLORIDE
  2. VRAYLAR [Concomitant]
     Active Substance: CARIPRAZINE
  3. VRAYLAR [Suspect]
     Active Substance: CARIPRAZINE
     Indication: BIPOLAR II DISORDER
     Dosage: ?
     Route: 048
     Dates: start: 20200612

REACTIONS (3)
  - Nausea [None]
  - Headache [None]
  - Somnambulism [None]

NARRATIVE: CASE EVENT DATE: 20200617
